FAERS Safety Report 5015414-9 (Version None)
Quarter: 2006Q2

REPORT INFORMATION
  Report Type: 
  Country: None (occurrence: None)
  Receive Date: 20060530
  Receipt Date: 20060530
  Transmission Date: 20061013
  Serious: No
  Sender: FDA-Public Use
  Company Number: None

PATIENT
  Age: 59 Year
  Sex: Male

DRUGS (1)
  1. XIGRIS [Suspect]
     Indication: SEPSIS
     Dosage: 24 MCG/KG/HR IV
     Route: 042
     Dates: start: 20050218, end: 20050219

REACTIONS (7)
  - BLOOD LACTIC ACID INCREASED [None]
  - BRADYCARDIA [None]
  - HAEMORRHAGE [None]
  - HYPOKALAEMIA [None]
  - POST PROCEDURAL COMPLICATION [None]
  - RENAL FAILURE [None]
  - SEDATION [None]
